FAERS Safety Report 22047479 (Version 2)
Quarter: 2023Q2

REPORT INFORMATION
  Report Type: Other
  Country: GB (occurrence: GB)
  Receive Date: 20230301
  Receipt Date: 20230412
  Transmission Date: 20230722
  Serious: Yes (Hospitalization)
  Sender: FDA-Public Use
  Company Number: GB-ELI_LILLY_AND_COMPANY-GB202302001254

PATIENT

DRUGS (6)
  1. ATOMOXETINE [Suspect]
     Active Substance: ATOMOXETINE
     Indication: Attention deficit hyperactivity disorder
     Dosage: 60 MILLIGRAM
     Route: 065
  2. STRATTERA [Suspect]
     Active Substance: ATOMOXETINE HYDROCHLORIDE
     Indication: Attention deficit hyperactivity disorder
     Dosage: 25 MILLIGRAM
     Route: 065
     Dates: start: 202206
  3. STRATTERA [Suspect]
     Active Substance: ATOMOXETINE HYDROCHLORIDE
     Dosage: 70 MILLIGRAM
     Route: 065
  4. STRATTERA [Suspect]
     Active Substance: ATOMOXETINE HYDROCHLORIDE
     Dosage: 70 MILLIGRAM
     Route: 065
  5. STRATTERA [Suspect]
     Active Substance: ATOMOXETINE HYDROCHLORIDE
     Dosage: 80 MILLIGRAM
     Route: 065
  6. STRATTERA [Suspect]
     Active Substance: ATOMOXETINE HYDROCHLORIDE
     Dosage: 60 MILLIGRAM, QD
     Route: 048

REACTIONS (13)
  - Feeling abnormal [Unknown]
  - Mobility decreased [Unknown]
  - Product dispensing error [Unknown]
  - Malaise [Unknown]
  - Product prescribing error [Unknown]
  - Hypertension [Unknown]
  - Heart rate increased [Unknown]
  - Headache [Unknown]
  - Nausea [Unknown]
  - Dizziness [Unknown]
  - Fatigue [Unknown]
  - Drug ineffective [Unknown]
  - Menopause [Recovering/Resolving]

NARRATIVE: CASE EVENT DATE: 20230101
